FAERS Safety Report 16978050 (Version 1)
Quarter: 2019Q4

REPORT INFORMATION
  Report Type: Spontaneous
  Country: DE (occurrence: DE)
  Receive Date: 20191031
  Receipt Date: 20191031
  Transmission Date: 20200122
  Serious: Yes (Other)
  Sender: FDA-Public Use
  Company Number: DE-ROCHE-2450138

PATIENT
  Sex: Female

DRUGS (2)
  1. HERCEPTIN [Suspect]
     Active Substance: TRASTUZUMAB
     Indication: BREAST CANCER METASTATIC
     Route: 065
     Dates: start: 2013
  2. PERJETA [Suspect]
     Active Substance: PERTUZUMAB
     Indication: BREAST CANCER METASTATIC
     Route: 065
     Dates: start: 2013

REACTIONS (4)
  - Duodenal ulcer [Recovered/Resolved]
  - Gamma-glutamyltransferase increased [Unknown]
  - Duodenal ulcer perforation [Unknown]
  - Gastric pH decreased [Unknown]

NARRATIVE: CASE EVENT DATE: 2016
